FAERS Safety Report 20591906 (Version 3)
Quarter: 2022Q2

REPORT INFORMATION
  Report Type: Spontaneous
  Country: FR (occurrence: FR)
  Receive Date: 20220314
  Receipt Date: 20220527
  Transmission Date: 20220720
  Serious: Yes (Death, Other)
  Sender: FDA-Public Use
  Company Number: FR-PFIZER INC-202200392499

PATIENT
  Age: 63 Year
  Sex: Female
  Weight: 63 kg

DRUGS (5)
  1. PAXLOVID [Suspect]
     Active Substance: NIRMATRELVIR\RITONAVIR
     Indication: COVID-19
     Dosage: 300 MG/ 100 MG TAKEN TWICE A DAY
     Route: 048
     Dates: start: 20220207, end: 20220212
  2. PREDNISONE [Concomitant]
     Active Substance: PREDNISONE
  3. ASPIRIN [Concomitant]
     Active Substance: ASPIRIN
  4. PANTOPRAZOLE [Concomitant]
     Active Substance: PANTOPRAZOLE
  5. BACLOFEN [Concomitant]
     Active Substance: BACLOFEN

REACTIONS (8)
  - Guillain-Barre syndrome [Fatal]
  - Acute polyneuropathy [Fatal]
  - Hemiplegia [Unknown]
  - Dysphonia [Unknown]
  - Dysphagia [Unknown]
  - Paresis cranial nerve [Unknown]
  - Salivary hypersecretion [Unknown]
  - Glycosuria [Unknown]

NARRATIVE: CASE EVENT DATE: 20220201
